FAERS Safety Report 21839389 (Version 1)
Quarter: 2023Q1

REPORT INFORMATION
  Report Type: Spontaneous
  Country: US (occurrence: US)
  Receive Date: 20230109
  Receipt Date: 20230109
  Transmission Date: 20230418
  Serious: No
  Sender: FDA-Public Use
  Company Number: US-KARYOPHARM-2022KPT001569

PATIENT

DRUGS (21)
  1. XPOVIO [Suspect]
     Active Substance: SELINEXOR
     Indication: Plasma cell myeloma
     Dosage: 40 MG, WEEKLY
     Route: 048
  2. ACYCLOVIR ABBOTT VIAL [Concomitant]
  3. DEXAMETHASONE [Concomitant]
     Active Substance: DEXAMETHASONE
  4. DULOXETINE [Concomitant]
     Active Substance: DULOXETINE
  5. FUROSEMIDE [Concomitant]
     Active Substance: FUROSEMIDE
  6. GRANISETRON [Concomitant]
     Active Substance: GRANISETRON
  7. ACETAMINOPHEN\HYDROCODONE [Concomitant]
     Active Substance: ACETAMINOPHEN\HYDROCODONE
  8. KYPROLIS [Concomitant]
     Active Substance: CARFILZOMIB
  9. LEVOTHYROXINE [Concomitant]
     Active Substance: LEVOTHYROXINE
  10. METHADONE [Concomitant]
     Active Substance: METHADONE HYDROCHLORIDE
  11. METOPROLOL [Concomitant]
     Active Substance: METOPROLOL
  12. NITROGLYCERIN [Concomitant]
     Active Substance: NITROGLYCERIN
  13. OLANZAPINE [Concomitant]
     Active Substance: OLANZAPINE
  14. OMEPRAZOLE [Concomitant]
     Active Substance: OMEPRAZOLE
  15. ONDANSETRON [Concomitant]
     Active Substance: ONDANSETRON
  16. ROSUVASTATIN [Concomitant]
     Active Substance: ROSUVASTATIN
  17. TADALAFIL [Concomitant]
     Active Substance: TADALAFIL
  18. XARELTO [Concomitant]
     Active Substance: RIVAROXABAN
  19. ZOLEDRONIC ACID [Concomitant]
     Active Substance: ZOLEDRONIC ACID
  20. LORAZEPAM [Concomitant]
     Active Substance: LORAZEPAM
  21. POTASSIUM CITRATE [Concomitant]
     Active Substance: POTASSIUM CITRATE

REACTIONS (4)
  - Somnolence [Unknown]
  - Dizziness [Unknown]
  - Fatigue [Unknown]
  - Nausea [Unknown]

NARRATIVE: CASE EVENT DATE: 20220101
